FAERS Safety Report 4333887-1 (Version None)
Quarter: 2004Q2

REPORT INFORMATION
  Report Type: 
  Country: None (occurrence: None)
  Receive Date: 20040402
  Receipt Date: 20040322
  Transmission Date: 20050107
  Serious: No
  Sender: FDA-Public Use
  Company Number: 2004204652US

PATIENT
  Age: 77 Year
  Sex: Male

DRUGS (4)
  1. BEXTRA [Suspect]
     Dosage: 10 MG, BID
     Dates: start: 20040301
  2. ASPIRIN [Concomitant]
  3. PAXIL [Concomitant]
  4. MULTIVITAMIN [Concomitant]

REACTIONS (2)
  - RASH [None]
  - URINE SODIUM INCREASED [None]
